FAERS Safety Report 5474676-4 (Version None)
Quarter: 2007Q4

REPORT INFORMATION
  Report Type: 
  Country: None (occurrence: None)
  Receive Date: 20071002
  Receipt Date: 20070809
  Transmission Date: 20080405
  Serious: Yes (Life-Threatening)
  Sender: FDA-Public Use
  Company Number: DE-TYCO HEALTHCARE/MALLINCKRODT-T200701183

PATIENT

DRUGS (1)
  1. OPTIRAY 300 [Suspect]
     Indication: COMPUTERISED TOMOGRAM THORAX
     Dosage: 80 ML, SINGLE
     Route: 042
     Dates: start: 20070718, end: 20070718

REACTIONS (3)
  - ANAPHYLACTIC SHOCK [None]
  - BRONCHOSPASM [None]
  - RESPIRATORY FAILURE [None]
